FAERS Safety Report 10078357 (Version 3)
Quarter: 2014Q2

REPORT INFORMATION
  Report Type: Spontaneous
  Country: SE (occurrence: None)
  Receive Date: 20140326
  Receipt Date: 20140512
  Transmission Date: 20141212
  Serious: Yes (Hospitalization, Other)
  Sender: FDA-Public Use
  Company Number: DSA_41268_2009

PATIENT
  Age: 40 Year
  Sex: Male

DRUGS (9)
  1. VOXRA [Suspect]
     Indication: DEPRESSION
     Route: 048
     Dates: start: 20090224, end: 20090224
  2. TRANDOLAN [Suspect]
     Indication: HEADACHE
     Dates: start: 200902
  3. OTHER THERAPEUTIC PRODUCTS [Suspect]
     Indication: HEADACHE
     Route: 048
     Dates: start: 20090224, end: 20090224
  4. ZOMIG (ZOLMITRIPTAN) [Concomitant]
  5. KESTINE (EBASTINE) [Concomitant]
  6. CITODON (PARACETAMOL) [Concomitant]
  7. KETOPROFEN (KETOPROFEN) [Concomitant]
  8. TRIMEPRAZINE TARTRATE (ALIMEMAZINE TARTRATE) [Concomitant]
  9. OMEPRAZOLE (OMEPRAZOLE) [Concomitant]

REACTIONS (13)
  - Feeling abnormal [None]
  - Abnormal behaviour [None]
  - Somnolence [None]
  - Postictal state [None]
  - Body temperature decreased [None]
  - Amnesia [None]
  - Epistaxis [None]
  - Ear haemorrhage [None]
  - Contusion [None]
  - Scratch [None]
  - Drug interaction [None]
  - Convulsion [None]
  - Incorrect dose administered [None]
